FAERS Safety Report 9132600 (Version 2)
Quarter: 2013Q3

REPORT INFORMATION
  Report Type: Report from Study
  Country: FR (occurrence: FR)
  Receive Date: 20130301
  Receipt Date: 20130729
  Transmission Date: 20140515
  Serious: Yes (Hospitalization, Other)
  Sender: FDA-Public Use
  Company Number: FR-ABBOTT-13P-056-1052765-00

PATIENT
  Age: 26 Year
  Sex: Female
  Weight: 52 kg

DRUGS (5)
  1. HUMIRA [Suspect]
     Indication: CROHN^S DISEASE
     Route: 058
     Dates: start: 20080915, end: 20080915
  2. HUMIRA [Suspect]
     Route: 058
  3. HUMIRA [Suspect]
     Route: 058
  4. LEVETIRACETAM [Concomitant]
     Indication: EPILEPSY
     Dates: start: 2003
  5. CLONAZEPAM [Concomitant]
     Indication: EPILEPSY
     Dates: start: 2003

REACTIONS (1)
  - Dermal cyst [Recovered/Resolved]
